FAERS Safety Report 7278901-9 (Version None)
Quarter: 2011Q1

REPORT INFORMATION
  Report Type: 
  Country: None (occurrence: None)
  Receive Date: 20110207
  Receipt Date: 20110126
  Transmission Date: 20110831
  Serious: Yes (Life-Threatening, Hospitalization)
  Sender: FDA-Public Use
  Company Number: ES-CELGENEUS-144-C5013-11010813

PATIENT
  Sex: Male

DRUGS (8)
  1. CC-5013 [Suspect]
     Route: 048
     Dates: start: 20101214, end: 20110103
  2. DEXAMETHASONE [Suspect]
     Route: 065
     Dates: start: 20101214, end: 20110110
  3. CLOPIDOGREL [Concomitant]
     Route: 048
  4. ASPIRIN [Concomitant]
     Route: 048
  5. ENOXAPARIN SODIUM [Concomitant]
     Indication: THROMBOSIS PROPHYLAXIS
     Route: 058
  6. ENALAPRIL MALEATE [Concomitant]
     Indication: HYPERTENSION
     Route: 048
  7. DEXAMETHASONE [Suspect]
     Indication: MULTIPLE MYELOMA
     Route: 065
     Dates: start: 20091210
  8. CC-5013 [Suspect]
     Indication: MULTIPLE MYELOMA
     Route: 048
     Dates: start: 20091210

REACTIONS (1)
  - CARDIOGENIC SHOCK [None]
